FAERS Safety Report 6486748-6 (Version None)
Quarter: 2009Q4

REPORT INFORMATION
  Report Type: 
  Country: None (occurrence: None)
  Receive Date: 20091210
  Receipt Date: 20091204
  Transmission Date: 20100525
  Serious: Yes (Hospitalization)
  Sender: FDA-Public Use
  Company Number: IT-ELI_LILLY_AND_COMPANY-IT200912001117

PATIENT
  Sex: Male

DRUGS (4)
  1. HUMALOG [Suspect]
     Indication: TYPE 1 DIABETES MELLITUS
     Dosage: 38 IU, DAILY (1/D)
     Route: 058
  2. LANTUS [Concomitant]
     Indication: TYPE 1 DIABETES MELLITUS
     Dosage: 40 IU, DAILY (1/D)
     Route: 058
  3. TRIATEC [Concomitant]
     Indication: ESSENTIAL HYPERTENSION
     Dosage: 1 D/F, DAILY (1/D)
     Route: 048
  4. VYTORIN [Concomitant]
     Dosage: 1 D/F, UNK
     Route: 048

REACTIONS (6)
  - AMNESIA [None]
  - DEPRESSED LEVEL OF CONSCIOUSNESS [None]
  - FALL [None]
  - HEAD INJURY [None]
  - HYPERHIDROSIS [None]
  - HYPOGLYCAEMIA [None]
